FAERS Safety Report 23964416 (Version 2)
Quarter: 2024Q2

REPORT INFORMATION
  Report Type: Spontaneous
  Country: US (occurrence: US)
  Receive Date: 20240612
  Receipt Date: 20240620
  Transmission Date: 20240715
  Serious: No
  Sender: FDA-Public Use
  Company Number: US-ELI_LILLY_AND_COMPANY-US202406007202

PATIENT
  Age: 45 Year
  Sex: Female

DRUGS (4)
  1. TADALAFIL [Suspect]
     Active Substance: TADALAFIL
     Indication: Product used for unknown indication
     Dosage: UNK, UNKNOWN
     Route: 065
  2. TYVASO DPI [Suspect]
     Active Substance: TREPROSTINIL
     Indication: Pulmonary arterial hypertension
     Dosage: 32 UG, QID (STRENGTH: 16/32/48MC)
     Route: 055
     Dates: start: 202405
  3. TYVASO DPI [Suspect]
     Active Substance: TREPROSTINIL
     Dosage: 48UG, QID (STRENGTH: 16/32/48MC)
     Route: 055
     Dates: start: 202405
  4. OPSUMIT [Suspect]
     Active Substance: MACITENTAN
     Indication: Product used for unknown indication
     Dosage: UNK, UNKNOWN
     Route: 065

REACTIONS (8)
  - Dry eye [Unknown]
  - Abdominal distension [Unknown]
  - Fluid retention [Unknown]
  - Cough [Unknown]
  - Vision blurred [Unknown]
  - Headache [Unknown]
  - Peripheral swelling [Unknown]
  - Fatigue [Unknown]
